FAERS Safety Report 6161528-X (Version None)
Quarter: 2009Q2

REPORT INFORMATION
  Report Type: 
  Country: None (occurrence: None)
  Receive Date: 20090417
  Receipt Date: 20090417
  Transmission Date: 20091009
  Serious: No
  Sender: FDA-Public Use
  Company Number: None

PATIENT
  Age: 2 Year
  Sex: Male

DRUGS (1)
  1. LISINOPRIL [Suspect]
     Dosage: 2.5 MG EVERY DAY PO
     Route: 048
     Dates: start: 20090415, end: 20090415

REACTIONS (1)
  - TACHYPNOEA [None]
